FAERS Safety Report 20539552 (Version 1)
Quarter: 2022Q1

REPORT INFORMATION
  Report Type: Spontaneous
  Country: CA (occurrence: CA)
  Receive Date: 20220302
  Receipt Date: 20220302
  Transmission Date: 20220424
  Serious: Yes (Other)
  Sender: FDA-Public Use
  Company Number: CA-JNJFOC-20211053881

PATIENT
  Age: 20 Year
  Sex: Male
  Weight: 70 kg

DRUGS (5)
  1. REMICADE [Suspect]
     Active Substance: INFLIXIMAB
     Indication: Ankylosing spondylitis
     Route: 042
  2. DICLOFENAC [Concomitant]
     Active Substance: DICLOFENAC
  3. DICLOFENAC [Concomitant]
     Active Substance: DICLOFENAC
  4. HUMIRA [Concomitant]
     Active Substance: ADALIMUMAB
  5. RISEDRONATE SODIUM [Concomitant]
     Active Substance: RISEDRONATE SODIUM
     Route: 048

REACTIONS (5)
  - Bone disorder [Unknown]
  - Fatigue [Unknown]
  - Off label use [Unknown]
  - Inappropriate schedule of product administration [Unknown]
  - Intentional product use issue [Unknown]
